FAERS Safety Report 9593423 (Version 1)
Quarter: 2013Q3

REPORT INFORMATION
  Report Type: Spontaneous
  Country: US (occurrence: None)
  Receive Date: 20130930
  Receipt Date: 20130930
  Transmission Date: 20140515
  Serious: No
  Sender: FDA-Public Use
  Company Number: 1000045814

PATIENT
  Age: 78 Year
  Sex: Female

DRUGS (5)
  1. LINZESS [Suspect]
     Indication: CONSTIPATION
     Route: 048
     Dates: start: 20130601
  2. SINEMET (SINEMET) (SINEMET) [Concomitant]
  3. GABAPENTIN (GABAPENTIN) (GABAPENTIN) [Concomitant]
  4. HYZAAR (HYZAAR) (HYZAAR) [Concomitant]
  5. CARDURA (DOXAZOSIN MESILATE) (DOXAZOSIN MESILATE) [Concomitant]

REACTIONS (1)
  - Drug ineffective [None]
